FAERS Safety Report 4724502-3 (Version None)
Quarter: 2005Q3

REPORT INFORMATION
  Report Type: 
  Country: None (occurrence: None)
  Receive Date: 20050726
  Receipt Date: 20050510
  Transmission Date: 20060218
  Serious: Yes (Hospitalization)
  Sender: FDA-Public Use
  Company Number: US-BRISTOL-MYERS SQUIBB COMPANY-12963450

PATIENT
  Age: 68 Year
  Sex: Female

DRUGS (9)
  1. ERBITUX [Suspect]
     Indication: NON-SMALL CELL LUNG CANCER
     Dosage: FIRST CYCLE (DOSE 380 MG), STOPPED.
     Route: 042
     Dates: start: 20050509, end: 20050509
  2. CARBOPLATIN [Suspect]
     Indication: NON-SMALL CELL LUNG CANCER
     Dosage: FIRST CYCLE.
     Route: 042
     Dates: start: 20050509, end: 20050509
  3. GEMZAR [Suspect]
     Indication: NON-SMALL CELL LUNG CANCER
     Dosage: FIRST CYCLE.
     Route: 042
     Dates: start: 20050509, end: 20050509
  4. BENADRYL [Concomitant]
     Route: 042
  5. CIPRO [Concomitant]
  6. DUONEB [Concomitant]
  7. CLARITIN-D [Concomitant]
  8. PERCOCET [Concomitant]
  9. PROTONIX [Concomitant]

REACTIONS (2)
  - DYSPNOEA [None]
  - INFUSION RELATED REACTION [None]
